FAERS Safety Report 20827569 (Version 1)
Quarter: 2022Q2

REPORT INFORMATION
  Report Type: Spontaneous
  Country: US (occurrence: US)
  Receive Date: 20220513
  Receipt Date: 20220513
  Transmission Date: 20220721
  Serious: Yes (Other)
  Sender: FDA-Public Use
  Company Number: US-TAKEDA-2022TUS031956

PATIENT
  Age: 75 Year
  Sex: Male

DRUGS (6)
  1. TRINTELLIX [Suspect]
     Active Substance: VORTIOXETINE HYDROBROMIDE
     Indication: Depression
     Dosage: 10 MILLIGRAM, QD
     Route: 065
  2. TRINTELLIX [Suspect]
     Active Substance: VORTIOXETINE HYDROBROMIDE
     Dosage: 5 MILLIGRAM, QD
     Route: 065
  3. WELLBUTRIN [Concomitant]
     Active Substance: BUPROPION HYDROCHLORIDE
     Dosage: 150 MILLIGRAM, QD
     Route: 065
  4. DEPLIN [Concomitant]
     Active Substance: LEVOMEFOLATE CALCIUM
     Dosage: 15 MILLIGRAM, QD
     Route: 065
  5. MELOXICAM [Concomitant]
     Active Substance: MELOXICAM
     Indication: Antiinflammatory therapy
     Dosage: 15 MILLIGRAM
     Route: 065
  6. ARICEPT [Concomitant]
     Active Substance: DONEPEZIL HYDROCHLORIDE
     Indication: Dementia Alzheimer^s type
     Dosage: UNK
     Route: 065

REACTIONS (4)
  - Loss of consciousness [Unknown]
  - Arrhythmia [Unknown]
  - Serotonin syndrome [Unknown]
  - Hyperhidrosis [Unknown]
